FAERS Safety Report 5405068-1 (Version None)
Quarter: 2007Q3

REPORT INFORMATION
  Report Type: 
  Country: None (occurrence: None)
  Receive Date: 20070803
  Receipt Date: 20070725
  Transmission Date: 20080115
  Serious: Yes (Hospitalization)
  Sender: FDA-Public Use
  Company Number: JP-ASTRAZENECA-2007AP04527

PATIENT
  Age: 42 Year
  Sex: Female

DRUGS (3)
  1. DIPRIVAN [Suspect]
     Indication: INDUCTION AND MAINTENANCE OF ANAESTHESIA
     Route: 042
  2. REMIFENTANIL HYDROCHLORIDE [Suspect]
     Indication: INDUCTION AND MAINTENANCE OF ANAESTHESIA
     Route: 041
  3. REMIFENTANIL HYDROCHLORIDE [Suspect]
     Route: 041

REACTIONS (1)
  - DELAYED RECOVERY FROM ANAESTHESIA [None]
